FAERS Safety Report 20591589 (Version 2)
Quarter: 2024Q1

REPORT INFORMATION
  Report Type: Spontaneous
  Country: US (occurrence: US)
  Receive Date: 20220314
  Receipt Date: 20240130
  Transmission Date: 20240409
  Serious: No
  Sender: FDA-Public Use
  Company Number: US-HORIZON THERAPEUTICS-HZN-2021-007913

PATIENT

DRUGS (2)
  1. PENNSAID [Suspect]
     Active Substance: DICLOFENAC SODIUM
     Indication: Osteoarthritis
     Dosage: UNK
     Route: 061
  2. PENNSAID [Suspect]
     Active Substance: DICLOFENAC SODIUM
     Indication: Arthralgia

REACTIONS (2)
  - Arthralgia [Unknown]
  - Inability to afford medication [Unknown]
